FAERS Safety Report 4781693-6 (Version None)
Quarter: 2005Q3

REPORT INFORMATION
  Report Type: 
  Country: None (occurrence: None)
  Receive Date: 20050927
  Receipt Date: 20050912
  Transmission Date: 20060218
  Serious: Yes (Hospitalization)
  Sender: FDA-Public Use
  Company Number: DSA_27100_2005

PATIENT
  Age: 39 Year
  Sex: Male

DRUGS (5)
  1. TAVOR [Suspect]
     Dosage: DF ONCE PO
     Route: 048
     Dates: start: 20050910, end: 20050910
  2. ALCOHOL [Suspect]
     Dosage: DF ONCE PO
     Route: 048
     Dates: start: 20050910, end: 20050910
  3. AMITRIPTYLINE HCL [Suspect]
     Dosage: 750 MG ONCE PO
     Route: 048
     Dates: start: 20050910, end: 20050910
  4. ATOSIL [Suspect]
     Dosage: DF ONCE PO
     Route: 048
     Dates: start: 20050910, end: 20050910
  5. ZOPICLONE [Suspect]
     Dosage: DF ONCE PO
     Route: 048
     Dates: start: 20050910, end: 20050910

REACTIONS (5)
  - INTENTIONAL MISUSE [None]
  - MULTIPLE DRUG OVERDOSE [None]
  - SOMNOLENCE [None]
  - TACHYCARDIA [None]
  - VISION BLURRED [None]
